FAERS Safety Report 6641511-8 (Version None)
Quarter: 2010Q1

REPORT INFORMATION
  Report Type: 
  Country: None (occurrence: None)
  Receive Date: 20100318
  Receipt Date: 20100309
  Transmission Date: 20100710
  Serious: Yes (Hospitalization)
  Sender: FDA-Public Use
  Company Number: NL-ABBOTT-10P-114-0631818-00

PATIENT
  Sex: Male

DRUGS (2)
  1. HUMIRA [Suspect]
     Indication: CROHN'S DISEASE
     Route: 058
     Dates: start: 20091224, end: 20100303
  2. CIPROFLOXACIN/PLACEBO [Concomitant]
     Indication: CROHN'S DISEASE
     Route: 048
     Dates: start: 20091224, end: 20100305

REACTIONS (1)
  - CROHN'S DISEASE [None]
